FAERS Safety Report 24371737 (Version 1)
Quarter: 2024Q3

REPORT INFORMATION
  Report Type: Spontaneous
  Country: US (occurrence: None)
  Receive Date: 20240926
  Receipt Date: 20240926
  Transmission Date: 20241016
  Serious: Yes (Death)
  Sender: Public
  Company Number: None

PATIENT
  Age: 58 Year
  Sex: Male

DRUGS (11)
  1. PRALUENT [Suspect]
     Active Substance: ALIROCUMAB
     Dosage: FREQUENCY : EVERY OTHER WEEK;?
     Dates: start: 20191028
  2. FLOVENT HFA [Concomitant]
     Active Substance: FLUTICASONE PROPIONATE
  3. CLOPIDOGREL [Concomitant]
  4. BISOPROLOL FUMARATE [Concomitant]
     Active Substance: BISOPROLOL FUMARATE
  5. VITAMINS [Concomitant]
     Active Substance: VITAMINS
  6. ATORVASTATIN [Concomitant]
     Active Substance: ATORVASTATIN
  7. FENOFIBRATE [Concomitant]
     Active Substance: FENOFIBRATE
  8. LISINOPRIL [Concomitant]
     Active Substance: LISINOPRIL
  9. OMEGA-3 ACIDS [Concomitant]
     Active Substance: OMEGA-3 FATTY ACIDS
  10. VITAMIN D [Concomitant]
  11. PERCOCET [Concomitant]

REACTIONS (1)
  - Death [None]
